FAERS Safety Report 25153830 (Version 1)
Quarter: 2025Q2

REPORT INFORMATION
  Report Type: Spontaneous
  Country: SA (occurrence: SA)
  Receive Date: 20250403
  Receipt Date: 20250403
  Transmission Date: 20250716
  Serious: Yes (Hospitalization, Other)
  Sender: GRANULES INDIA
  Company Number: SA-GRANULES-SA-2025GRALIT00142

PATIENT
  Age: 17 Year
  Sex: Female

DRUGS (1)
  1. ACETAMINOPHEN [Suspect]
     Active Substance: ACETAMINOPHEN
     Indication: Product used for unknown indication
     Route: 048

REACTIONS (3)
  - Hepatitis [Recovered/Resolved]
  - Anaphylactoid reaction [Recovered/Resolved]
  - Overdose [Unknown]
